FAERS Safety Report 6758571-6 (Version None)
Quarter: 2010Q2

REPORT INFORMATION
  Report Type: 
  Country: None (occurrence: None)
  Receive Date: 20100602
  Receipt Date: 20100519
  Transmission Date: 20101027
  Serious: Yes (Life-Threatening, Hospitalization)
  Sender: FDA-Public Use
  Company Number: LTI2010A00105

PATIENT
  Age: 50 Year
  Sex: Female

DRUGS (1)
  1. LANSOPRAZOLE [Suspect]
     Indication: ABDOMINAL PAIN
     Dosage: 15 MG (15 MG, ONCE) ORAL
     Route: 048
     Dates: start: 20100301

REACTIONS (5)
  - ANAPHYLACTIC SHOCK [None]
  - MALAISE [None]
  - SKIN TEST POSITIVE [None]
  - TACHYCARDIA [None]
  - TREMOR [None]
